FAERS Safety Report 7204707 (Version 20)
Quarter: 2013Q2

REPORT INFORMATION
  Report Type: Spontaneous
  Country: US (occurrence: US)
  Receive Date: 20091208
  Receipt Date: 20130521
  Transmission Date: 20140414
  Serious: Yes (Disabling, Other)
  Sender: FDA-Public Use
  Company Number: PHEH2009US16962

PATIENT
  Sex: Female

DRUGS (19)
  1. ZOMETA [Suspect]
     Indication: PLASMA CELL MYELOMA
     Dates: end: 20081107
  2. AMOX-CLAV [Concomitant]
     Route: 048
  3. FENTANYL [Concomitant]
  4. METHYLPREDNISOLONE [Concomitant]
  5. OXYCODONE [Concomitant]
     Route: 048
  6. TRAMADOL [Concomitant]
     Route: 048
  7. NAPROXEN [Concomitant]
     Route: 048
  8. HYDROCODONE [Concomitant]
     Route: 048
  9. PENICILLIN VK [Concomitant]
     Route: 048
  10. CHLORHEXIDINE [Concomitant]
  11. ALKERAN [Concomitant]
     Dosage: 6 MG, DAILY FOR 7 DAYS EVERY 6 WEEKS
  12. THALIDOMIDE [Concomitant]
     Dosage: 50 MG, DAILY
  13. AMLODIPINE BESYLATE [Concomitant]
     Dosage: 5 MG, DAILY
  14. ASPIRIN [Concomitant]
     Dosage: 81 MG, PER DAY
  15. SENNACOTS [Concomitant]
  16. IBUPROFEN [Concomitant]
  17. DILAUDID [Concomitant]
  18. CHEMOTHERAPEUTICS [Concomitant]
  19. HEP-LOCK [Concomitant]

REACTIONS (63)
  - Plasma cell myeloma [Unknown]
  - Monoclonal gammopathy [Unknown]
  - Osteonecrosis of jaw [Unknown]
  - Injury [Unknown]
  - Pain [Unknown]
  - Anxiety [Unknown]
  - Pain in jaw [Unknown]
  - Bone lesion [Unknown]
  - Exposed bone in jaw [Unknown]
  - Primary sequestrum [Unknown]
  - Anhedonia [Unknown]
  - Loose tooth [Unknown]
  - Denture wearer [Unknown]
  - Hypertension [Unknown]
  - Sleep apnoea syndrome [Unknown]
  - Renal disorder [Unknown]
  - Renal artery arteriosclerosis [Unknown]
  - Herpes zoster [Unknown]
  - Fall [Unknown]
  - Radius fracture [Unknown]
  - Cardiomegaly [Unknown]
  - Post herpetic neuralgia [Unknown]
  - Bronchitis [Unknown]
  - Vaginal haemorrhage [Recovered/Resolved]
  - Excoriation [Unknown]
  - Upper limb fracture [Unknown]
  - Mitral valve incompetence [Unknown]
  - Renal artery stenosis [Unknown]
  - Neuropathy peripheral [Unknown]
  - Chest pain [Unknown]
  - Emphysema [Unknown]
  - Osteopenia [Unknown]
  - Tricuspid valve incompetence [Unknown]
  - Loss of consciousness [Unknown]
  - Kyphosis [Unknown]
  - Intervertebral disc space narrowing [Unknown]
  - Night sweats [Unknown]
  - Hypoaesthesia [Unknown]
  - Anaemia [Unknown]
  - Fatigue [Unknown]
  - Sinus disorder [Unknown]
  - Abdominal discomfort [Unknown]
  - Constipation [Unknown]
  - Pain in extremity [Unknown]
  - Dizziness [Unknown]
  - Humerus fracture [Unknown]
  - Gastrointestinal haemorrhage [Unknown]
  - Haemorrhoids [Unknown]
  - Oesophagitis [Unknown]
  - Hiatus hernia [Unknown]
  - Joint dislocation [Unknown]
  - Osteoporosis [Unknown]
  - Bone fragmentation [Unknown]
  - Haemorrhage [Unknown]
  - Hyperkeratosis [Unknown]
  - Paraesthesia [Recovering/Resolving]
  - Coeliac disease [Unknown]
  - Gastrooesophageal reflux disease [Unknown]
  - Cataract [Unknown]
  - Lipoma [Unknown]
  - Musculoskeletal discomfort [Unknown]
  - Neck pain [Unknown]
  - Arthropathy [Unknown]
